FAERS Safety Report 12533281 (Version 1)
Quarter: 2016Q3

REPORT INFORMATION
  Report Type: Spontaneous
  Country: US (occurrence: US)
  Receive Date: 20160706
  Receipt Date: 20160706
  Transmission Date: 20161109
  Serious: No
  Sender: FDA-Public Use
  Company Number: US-PURDUE-USA-2015-0128026

PATIENT
  Age: 46 Year
  Sex: Male

DRUGS (2)
  1. NORTRIPTYLINE [Concomitant]
     Active Substance: NORTRIPTYLINE
     Indication: PAIN
     Dosage: 75 MG, UNK
  2. BUTRANS [Suspect]
     Active Substance: BUPRENORPHINE
     Indication: NEURALGIA
     Dosage: 20 MCG/HR, WEEKLY
     Route: 062

REACTIONS (3)
  - Product adhesion issue [Unknown]
  - Drug administered at inappropriate site [Unknown]
  - Drug ineffective [Unknown]
